FAERS Safety Report 17959595 (Version 1)
Quarter: 2020Q2

REPORT INFORMATION
  Report Type: Spontaneous
  Country: US (occurrence: US)
  Receive Date: 20200630
  Receipt Date: 20200630
  Transmission Date: 20200714
  Serious: No
  Sender: FDA-Public Use
  Company Number: US-ALVOGEN-2020-ALVOGEN-108146

PATIENT
  Sex: Female
  Weight: 67.59 kg

DRUGS (2)
  1. ASCORBIC ACID/VITAMIN A/VITAMIN D3/VITAMIN E/VITAMIN B6/FOLIC ACID/VITAMIN B12/BIOTIN/PANTOTHENIC AC [Concomitant]
     Indication: VITAMIN SUPPLEMENTATION
     Dosage: 2 A DAY BY MOUTH, GUMMIES, USED THEM FOR ABOUT 7-10 DAYS
     Route: 048
     Dates: start: 20200325
  2. ATENOLOL. [Suspect]
     Active Substance: ATENOLOL
     Indication: PALPITATIONS
     Dosage: ONE TABLET DAILY
     Dates: start: 1995

REACTIONS (1)
  - Off label use [Unknown]
